FAERS Safety Report 21099537 (Version 1)
Quarter: 2022Q3

REPORT INFORMATION
  Report Type: Spontaneous
  Country: US (occurrence: US)
  Receive Date: 20220719
  Receipt Date: 20220719
  Transmission Date: 20221027
  Serious: No
  Sender: FDA-Public Use
  Company Number: US-BIOGEN-2022BI01122506

PATIENT
  Sex: Female

DRUGS (1)
  1. TYSABRI [Suspect]
     Active Substance: NATALIZUMAB
     Indication: Multiple sclerosis
     Route: 050
     Dates: start: 20220210, end: 20220407

REACTIONS (5)
  - Dysstasia [Unknown]
  - Gait inability [Unknown]
  - Burning sensation [Unknown]
  - Eye movement disorder [Unknown]
  - Drug intolerance [Unknown]
